FAERS Safety Report 5728697-4 (Version None)
Quarter: 2008Q2

REPORT INFORMATION
  Report Type: 
  Country: None (occurrence: None)
  Receive Date: 20080430
  Receipt Date: 20080414
  Transmission Date: 20081010
  Serious: Yes (Death)
  Sender: FDA-Public Use
  Company Number: 2008JP001886

PATIENT
  Age: 33 Year
  Sex: Female

DRUGS (5)
  1. FUNGUARD(MICAFUNGIN) FUNGUARD(MICAFUNGIN) INJECTION [Suspect]
  2. STEROID [Concomitant]
  3. FOSCAVIR [Concomitant]
  4. MYCOPHENOLATE MOFETIL [Concomitant]
  5. AMPHOTERICIN B [Concomitant]

REACTIONS (6)
  - BLOOD CULTURE POSITIVE [None]
  - CEREBRAL HAEMORRHAGE [None]
  - FUNGAL INFECTION [None]
  - PNEUMONIA FUNGAL [None]
  - SPUTUM CULTURE POSITIVE [None]
  - TRICHOSPORON INFECTION [None]
